APPROVED DRUG PRODUCT: CEFPROZIL
Active Ingredient: CEFPROZIL
Strength: 500MG
Dosage Form/Route: TABLET;ORAL
Application: A065340 | Product #002 | TE Code: AB
Applicant: AUROBINDO PHARMA LTD
Approved: May 24, 2007 | RLD: No | RS: No | Type: RX